FAERS Safety Report 6657352-1 (Version None)
Quarter: 2010Q1

REPORT INFORMATION
  Report Type: 
  Country: None (occurrence: None)
  Receive Date: 20100330
  Receipt Date: 20100326
  Transmission Date: 20100710
  Serious: Yes (Hospitalization)
  Sender: FDA-Public Use
  Company Number: RU-B.I. PHARMACEUTICALS,INC./RIDGEFIELD-2010-AP-00161AP

PATIENT
  Age: 25 Year
  Sex: Male
  Weight: 60 kg

DRUGS (2)
  1. MOVALIS [Suspect]
     Indication: BURSITIS
     Dosage: 15MG QD
     Route: 048
     Dates: start: 20100210, end: 20100210
  2. MOVALIS [Suspect]
     Indication: HAEMARTHROSIS

REACTIONS (1)
  - HAEMARTHROSIS [None]
